FAERS Safety Report 16710892 (Version 1)
Quarter: 2019Q3

REPORT INFORMATION
  Report Type: Spontaneous
  Country: US (occurrence: US)
  Receive Date: 20190816
  Receipt Date: 20190816
  Transmission Date: 20191004
  Serious: Yes (Hospitalization, Other)
  Sender: FDA-Public Use
  Company Number: US-PFIZER INC-2019347745

PATIENT
  Age: 81 Year
  Sex: Female
  Weight: 83.91 kg

DRUGS (7)
  1. XELJANZ [Suspect]
     Active Substance: TOFACITINIB CITRATE
     Indication: ARTHRITIS
     Dosage: 1 DF, DAILY
     Route: 048
     Dates: end: 2019
  2. ALEVE [Concomitant]
     Active Substance: NAPROXEN SODIUM
     Indication: PAIN IN EXTREMITY
     Dosage: 440 MG, DAILY [SHE TOOK IT EVERY DAY UP UNTIL THREE DAYS AGO]
  3. XELJANZ XR [Suspect]
     Active Substance: TOFACITINIB CITRATE
     Dosage: 11 MG, UNK
  4. ALEVE [Concomitant]
     Active Substance: NAPROXEN SODIUM
     Indication: ARTHRALGIA
  5. TYLENOL EXTRA STRENGTH [Concomitant]
     Active Substance: ACETAMINOPHEN
     Indication: PAIN IN EXTREMITY
     Dosage: 1000 MG, AS NEEDED
     Route: 048
  6. XELJANZ [Suspect]
     Active Substance: TOFACITINIB CITRATE
     Dosage: UNK
  7. TYLENOL EXTRA STRENGTH [Concomitant]
     Active Substance: ACETAMINOPHEN
     Indication: ARTHRALGIA

REACTIONS (10)
  - Drug ineffective for unapproved indication [Recovering/Resolving]
  - Mobility decreased [Unknown]
  - Peripheral swelling [Unknown]
  - Gait disturbance [Unknown]
  - Cerebrovascular accident [Recovering/Resolving]
  - Hepatitis B virus test positive [Unknown]
  - Pain [Recovering/Resolving]
  - Somnolence [Unknown]
  - Arthritis [Unknown]
  - Musculoskeletal stiffness [Unknown]

NARRATIVE: CASE EVENT DATE: 20190726
